FAERS Safety Report 9060188 (Version 1)
Quarter: 2013Q1

REPORT INFORMATION
  Report Type: Spontaneous
  Country: US (occurrence: None)
  Receive Date: 20130206
  Receipt Date: 20130206
  Transmission Date: 20140127
  Serious: No
  Sender: FDA-Public Use
  Company Number: None

PATIENT
  Age: 62 Year
  Sex: Female
  Weight: 71.67 kg

DRUGS (1)
  1. AMLODIPINE [Suspect]
     Dosage: THREE YEARS

REACTIONS (9)
  - Dizziness [None]
  - Dyspnoea [None]
  - Urticaria [None]
  - Fatigue [None]
  - Pruritus [None]
  - Heart rate irregular [None]
  - Muscle spasms [None]
  - Gingival pain [None]
  - Palpitations [None]
